FAERS Safety Report 5694002-5 (Version None)
Quarter: 2008Q2

REPORT INFORMATION
  Report Type: 
  Country: None (occurrence: None)
  Receive Date: 20080403
  Receipt Date: 20080218
  Transmission Date: 20081010
  Serious: Yes (Life-Threatening)
  Sender: FDA-Public Use
  Company Number: MX-GENENTECH-258722

PATIENT
  Age: 60 Year
  Sex: Female
  Weight: 58 kg

DRUGS (1)
  1. MABTHERA [Suspect]
     Indication: IDIOPATHIC THROMBOCYTOPENIC PURPURA
     Dosage: 500 MG, QD
     Route: 042
     Dates: start: 20080207, end: 20080211

REACTIONS (3)
  - DYSPNOEA [None]
  - EYE HAEMORRHAGE [None]
  - OCULAR HYPERAEMIA [None]
